FAERS Safety Report 7490422-7 (Version None)
Quarter: 2011Q2

REPORT INFORMATION
  Report Type: 
  Country: None (occurrence: None)
  Receive Date: 20110519
  Receipt Date: 20101223
  Transmission Date: 20111010
  Serious: Yes (Hospitalization)
  Sender: FDA-Public Use
  Company Number: US-BAYER-201035927NA

PATIENT
  Age: 34 Year
  Sex: Female
  Weight: 70.295 kg

DRUGS (10)
  1. WARFARIN SODIUM [Concomitant]
     Dosage: UNK
     Dates: start: 20050601
  2. AMBIEN [Concomitant]
     Dosage: 10 MG, PRN
  3. YASMIN [Suspect]
     Indication: MENORRHAGIA
     Route: 048
     Dates: start: 20041101, end: 20050601
  4. YASMIN [Suspect]
     Indication: MENSTRUATION IRREGULAR
     Dosage: UNK
     Route: 048
     Dates: start: 20040812, end: 20041223
  5. YASMIN [Suspect]
     Indication: CONTRACEPTION
     Dosage: UNK
     Dates: start: 20040801, end: 20050601
  6. LEXAPRO [Concomitant]
     Dosage: 20 MG, QD
  7. ADVAIR DISKUS 100/50 [Concomitant]
  8. DALTEPARIN SODIUM [Concomitant]
  9. YASMIN [Suspect]
     Indication: ACNE
  10. NORETHINDRONE [Concomitant]
     Dosage: UNK
     Dates: start: 20080602, end: 20080701

REACTIONS (3)
  - MENORRHAGIA [None]
  - PULMONARY EMBOLISM [None]
  - THROMBOSIS [None]
